FAERS Safety Report 15119256 (Version 1)
Quarter: 2018Q3

REPORT INFORMATION
  Report Type: Spontaneous
  Country: FR (occurrence: FR)
  Receive Date: 20180709
  Receipt Date: 20180709
  Transmission Date: 20181010
  Serious: Yes (Hospitalization)
  Sender: FDA-Public Use
  Company Number: FR-TEVA-2018-FR-922397

PATIENT
  Age: 38 Year
  Sex: Female

DRUGS (2)
  1. MEFLOQUINE [Suspect]
     Active Substance: MEFLOQUINE
     Indication: MALARIA PROPHYLAXIS
     Route: 048
     Dates: start: 20170215, end: 20170315
  2. CABERGOLINE. [Suspect]
     Active Substance: CABERGOLINE
     Indication: PITUITARY TUMOUR BENIGN
     Dosage: 0.5 MG 4 * / WEEK
     Route: 048
     Dates: end: 201709

REACTIONS (3)
  - Delusional disorder, unspecified type [Recovering/Resolving]
  - Sleep disorder [Recovering/Resolving]
  - Depression [Recovering/Resolving]

NARRATIVE: CASE EVENT DATE: 20170501
